FAERS Safety Report 9892414 (Version 3)
Quarter: 2015Q2

REPORT INFORMATION
  Report Type: Report from Study
  Country: NZ (occurrence: NZ)
  Receive Date: 20140212
  Receipt Date: 20150416
  Transmission Date: 20150821
  Serious: Yes (Disabling)
  Sender: FDA-Public Use
  Company Number: PHHY2014NZ003558

PATIENT
  Sex: Male

DRUGS (4)
  1. CLOZARIL [Suspect]
     Active Substance: CLOZAPINE
     Indication: SCHIZOPHRENIA
     Dosage: 325 MG, UNK
     Route: 048
     Dates: start: 20090514
  2. EPILIM [Concomitant]
     Active Substance: VALPROATE SODIUM
     Indication: SEIZURE
     Dosage: 1500 MG, QD (500 MG MANE AND 1000 MG NOCTE)
     Route: 048
  3. ZIPRASIDONE [Concomitant]
     Active Substance: ZIPRASIDONE
     Indication: SEIZURE
     Dosage: 120 MG, QD (40 MG MANE AND 80 MG NOCTE)
     Route: 048
     Dates: start: 2011
  4. CLOZARIL [Suspect]
     Active Substance: CLOZAPINE
     Indication: SCHIZOAFFECTIVE DISORDER
     Dosage: 325 MG, QHS (NOCTE)
     Route: 048
     Dates: start: 2010

REACTIONS (3)
  - Salivary hypersecretion [Unknown]
  - Sleep disorder [Unknown]
  - Depressed mood [Unknown]
